FAERS Safety Report 20778013 (Version 1)
Quarter: 2022Q2

REPORT INFORMATION
  Report Type: Spontaneous
  Country: GB (occurrence: GB)
  Receive Date: 20220503
  Receipt Date: 20220503
  Transmission Date: 20220721
  Serious: Yes (Disabling, Other)
  Sender: FDA-Public Use
  Company Number: None

PATIENT
  Age: 31 Year
  Sex: Male
  Weight: 83 kg

DRUGS (3)
  1. AMITRIPTYLINE [Suspect]
     Active Substance: AMITRIPTYLINE
     Indication: Pain in jaw
     Dosage: 25 MG ON AND OFF FROM 2019. REGULARLY TOOK FROM OCTOBER 2021. 50 MG FROM 6TH FEBRUARY 2022. BACK ...
     Dates: start: 20190206
  2. IBUPROFEN [Concomitant]
     Active Substance: IBUPROFEN
     Indication: Adverse drug reaction
     Dates: start: 20210923
  3. VOLTAROL [Concomitant]
     Active Substance: DICLOFENAC SODIUM
     Indication: Adverse drug reaction
     Dates: start: 20210928

REACTIONS (3)
  - Lip haemorrhage [Recovered/Resolved]
  - Jaw disorder [Not Recovered/Not Resolved]
  - Off label use [Unknown]

NARRATIVE: CASE EVENT DATE: 20220217
